FAERS Safety Report 6023238-9 (Version None)
Quarter: 2008Q4

REPORT INFORMATION
  Report Type: 
  Country: None (occurrence: None)
  Receive Date: 20081223
  Receipt Date: 20081217
  Transmission Date: 20090506
  Serious: Yes (Other)
  Sender: FDA-Public Use
  Company Number: POMP-1000428

PATIENT
  Age: 2 Year
  Weight: 10 kg

DRUGS (1)
  1. MYOZYME [Suspect]
     Indication: GLYCOGEN STORAGE DISEASE TYPE II
     Dosage: 30 MG/KG, Q2W, INTRAVENOUS
     Route: 042
     Dates: start: 20060927

REACTIONS (1)
  - NO THERAPEUTIC RESPONSE [None]
